FAERS Safety Report 8479821-4 (Version None)
Quarter: 2012Q2

REPORT INFORMATION
  Report Type: 
  Country: None (occurrence: None)
  Receive Date: 20120629
  Receipt Date: 20120622
  Transmission Date: 20120825
  Serious: Yes (Other)
  Sender: FDA-Public Use
  Company Number: US-ELI_LILLY_AND_COMPANY-US201206008391

PATIENT
  Sex: Male

DRUGS (8)
  1. HUMULIN N [Suspect]
     Dosage: UNK
     Dates: start: 20120501
  2. HUMULIN 70/30 [Suspect]
     Indication: DIABETES MELLITUS
     Dosage: 60 U, EACH MORNING
     Dates: end: 20120501
  3. HUMULIN N [Suspect]
     Indication: DIABETES MELLITUS
     Dosage: UNK, UNKNOWN
  4. ANTIDEPRESSANTS [Concomitant]
  5. GLUCOPHAGE [Concomitant]
     Indication: DIABETES MELLITUS
  6. HUMULIN 70/30 [Suspect]
     Dosage: 40 U, EACH EVENING
     Dates: end: 20120501
  7. ANTIHYPERTENSIVES [Concomitant]
  8. DIURETICS [Concomitant]

REACTIONS (13)
  - BLOOD GLUCOSE INCREASED [None]
  - NEUROPATHY PERIPHERAL [None]
  - SLUGGISHNESS [None]
  - BLOOD GLUCOSE DECREASED [None]
  - HEPATITIS C [None]
  - DENTAL CARIES [None]
  - DRY MOUTH [None]
  - MEMORY IMPAIRMENT [None]
  - PHOTOSENSITIVITY REACTION [None]
  - HYPOAESTHESIA [None]
  - PAIN [None]
  - MOBILITY DECREASED [None]
  - DRUG INEFFECTIVE [None]
